FAERS Safety Report 5227047-X (Version None)
Quarter: 2007Q1

REPORT INFORMATION
  Report Type: 
  Country: None (occurrence: None)
  Receive Date: 20070201
  Receipt Date: 20070201
  Transmission Date: 20070707
  Serious: Yes (Hospitalization)
  Sender: FDA-Public Use
  Company Number: None

PATIENT
  Age: 47 Year
  Sex: Female

DRUGS (10)
  1. KEPPRA [Suspect]
     Indication: CONVULSION
     Dosage: 250MG IN A.M. AND 500MG QHS BID PO
     Route: 048
  2. BEELITH [Concomitant]
  3. REGLAN [Concomitant]
  4. THIAMINE [Concomitant]
  5. FOLIC ACID [Concomitant]
  6. KADIAN [Concomitant]
  7. CLONAZEPAM [Concomitant]
  8. TEMAZEPAM [Concomitant]
  9. XIFAXAN [Concomitant]
  10. OXYCODONE HCL [Concomitant]

REACTIONS (9)
  - ASCITES [None]
  - BILE DUCT STONE [None]
  - CHOLECYSTITIS [None]
  - CHOLELITHIASIS [None]
  - DEHYDRATION [None]
  - HEPATIC CIRRHOSIS [None]
  - MESENTERIC VEIN THROMBOSIS [None]
  - PANCREATITIS [None]
  - THROMBOCYTOPENIA [None]
